FAERS Safety Report 6370152-5 (Version None)
Quarter: 2009Q3

REPORT INFORMATION
  Report Type: 
  Country: None (occurrence: None)
  Receive Date: 20090923
  Receipt Date: 20071119
  Transmission Date: 20100115
  Serious: No
  Sender: FDA-Public Use
  Company Number: US-ASTRAZENECA-2006UW21413

PATIENT
  Age: 42 Year
  Sex: Male
  Weight: 65.8 kg

DRUGS (17)
  1. SEROQUEL [Suspect]
     Indication: ANXIETY
     Route: 048
     Dates: start: 19970101, end: 19990101
  2. SEROQUEL [Suspect]
     Indication: DEPRESSION
     Route: 048
     Dates: start: 19970101, end: 19990101
  3. DILTIAZEM HYDROCHLORIDE [Concomitant]
     Route: 065
  4. HYDROXYZINE [Concomitant]
     Route: 065
  5. HYDROCORTISONE [Concomitant]
     Route: 065
  6. LISINOPRIL [Concomitant]
     Indication: BLOOD PRESSURE
     Route: 065
  7. METHOCARBAMOL [Concomitant]
     Route: 065
  8. ATENOLOL [Concomitant]
     Route: 065
  9. PRAZOSIN HYDROCHLORIDE [Concomitant]
     Route: 065
  10. PROCARDIA XL [Concomitant]
     Indication: BLOOD PRESSURE
     Route: 065
  11. HUMULIN R [Concomitant]
     Dosage: STRENGTH 100 U/ML
     Route: 065
  12. HYZAAR [Concomitant]
     Dosage: 25/100
     Route: 065
  13. ACTOS [Concomitant]
     Route: 065
  14. GLUCOVANCE [Concomitant]
     Dosage: 1.25 MG/ 250 MG
     Route: 065
  15. LOTRISONE [Concomitant]
     Route: 065
  16. TOPROL-XL [Concomitant]
     Route: 065
  17. IBUPROFEN [Concomitant]
     Dosage: STRENGTH 400-800 MG
     Route: 065

REACTIONS (1)
  - DIABETES MELLITUS [None]
